FAERS Safety Report 8854230 (Version 2)
Quarter: 2013Q1

REPORT INFORMATION
  Report Type: Spontaneous
  Country: FR (occurrence: FR)
  Receive Date: 20121022
  Receipt Date: 20130208
  Transmission Date: 20140127
  Serious: Yes (Other)
  Sender: FDA-Public Use
  Company Number: FR-JNJFOC-20121008721

PATIENT
  Sex: 0

DRUGS (8)
  1. REMICADE [Suspect]
     Indication: COLITIS ULCERATIVE
     Dosage: ON DAYS 0, 14 AND 42
     Route: 042
  2. AZATHIOPRINE [Concomitant]
     Indication: COLITIS ULCERATIVE
     Dosage: 2.0-2.5 MG/KG PER DAY
     Route: 065
  3. CORTICOSTEROIDS [Concomitant]
     Indication: COLITIS ULCERATIVE
     Route: 042
  4. METHYLPREDNISOLONE [Concomitant]
     Indication: COLITIS ULCERATIVE
     Route: 048
  5. METHYLPREDNISOLONE [Concomitant]
     Indication: COLITIS ULCERATIVE
     Route: 048
  6. METHYLPREDNISOLONE [Concomitant]
     Indication: COLITIS ULCERATIVE
     Route: 048
  7. METHYLPREDNISOLONE [Concomitant]
     Indication: COLITIS ULCERATIVE
     Route: 048
  8. METHYLPREDNISOLONE [Concomitant]
     Indication: COLITIS ULCERATIVE
     Route: 048

REACTIONS (1)
  - Embolism venous [Unknown]
